FAERS Safety Report 8540929-6 (Version None)
Quarter: 2012Q3

REPORT INFORMATION
  Report Type: 
  Country: None (occurrence: None)
  Receive Date: 20120726
  Receipt Date: 20110808
  Transmission Date: 20120928
  Serious: No
  Sender: FDA-Public Use
  Company Number: US-ASTRAZENECA-2011SE47454

PATIENT
  Sex: Female

DRUGS (5)
  1. TOPAMAX [Concomitant]
  2. SEROQUEL [Suspect]
     Indication: BIPOLAR DISORDER
     Route: 048
  3. SEROQUEL [Suspect]
     Dosage: 50 MG FOR 2 NIGHTS THEN 100 MG THE 3RD NIGHT
     Route: 048
  4. ATIVAN [Concomitant]
  5. VISTARIL [Concomitant]

REACTIONS (4)
  - FORMICATION [None]
  - AGITATION [None]
  - RESTLESSNESS [None]
  - ANXIETY [None]
